FAERS Safety Report 6077106-7 (Version None)
Quarter: 2009Q1

REPORT INFORMATION
  Report Type: 
  Country: None (occurrence: None)
  Receive Date: 20090211
  Receipt Date: 20090211
  Transmission Date: 20090719
  Serious: Yes (Life-Threatening, Hospitalization, Disabling, Other)
  Sender: FDA-Public Use
  Company Number: None

PATIENT
  Age: 18 Year
  Sex: Male
  Weight: 133 kg

DRUGS (3)
  1. BICILLIN L-A [Suspect]
     Indication: STAPHYLOCOCCAL PHARYNGITIS
     Dosage: ONCE IM
     Route: 030
     Dates: start: 20090129, end: 20090201
  2. BICILLIN L-A [Suspect]
     Indication: UPPER RESPIRATORY TRACT INFECTION
     Dosage: ONCE IM
     Route: 030
     Dates: start: 20090129, end: 20090201
  3. AUGMENTIN '125' [Suspect]
     Indication: UPPER RESPIRATORY TRACT INFECTION
     Dosage: PO
     Route: 048
     Dates: start: 20090129, end: 20090201

REACTIONS (7)
  - DEHYDRATION [None]
  - DIALYSIS [None]
  - HYPERKALAEMIA [None]
  - HYPERPHOSPHATAEMIA [None]
  - HYPOCALCAEMIA [None]
  - RENAL FAILURE ACUTE [None]
  - RHABDOMYOLYSIS [None]
